FAERS Safety Report 6584203-6 (Version None)
Quarter: 2010Q1

REPORT INFORMATION
  Report Type: 
  Country: None (occurrence: None)
  Receive Date: 20100216
  Receipt Date: 20100113
  Transmission Date: 20100710
  Serious: No
  Sender: FDA-Public Use
  Company Number: US-ABBOTT-10P-163-0619773-00

PATIENT
  Sex: Female
  Weight: 110.78 kg

DRUGS (5)
  1. SIMCOR [Suspect]
     Indication: BLOOD CHOLESTEROL INCREASED
     Dosage: 1
     Dates: start: 20091229
  2. LABETALOL HCL [Concomitant]
     Indication: HYPERTENSION
  3. AZOR [Concomitant]
     Indication: HYPERTENSION
  4. CLONIDINE [Concomitant]
     Indication: HYPERTENSION
     Dosage: AT NIGHT
  5. CLARITIN [Concomitant]
     Indication: SINUS DISORDER
     Dosage: PRN

REACTIONS (4)
  - FLUSHING [None]
  - PARAESTHESIA [None]
  - POOR QUALITY SLEEP [None]
  - SKIN BURNING SENSATION [None]
